FAERS Safety Report 5042754-X (Version None)
Quarter: 2006Q3

REPORT INFORMATION
  Report Type: 
  Country: None (occurrence: None)
  Receive Date: 20060705
  Receipt Date: 20060626
  Transmission Date: 20061208
  Serious: Yes (Life-Threatening, Other)
  Sender: FDA-Public Use
  Company Number: CA-MERCK-0606USA05212

PATIENT
  Age: 69 Year
  Sex: Female

DRUGS (9)
  1. DECADRON [Suspect]
     Indication: MULTIPLE MYELOMA
     Route: 048
  2. THALOMID [Suspect]
     Indication: MULTIPLE MYELOMA
     Route: 048
     Dates: start: 20050901, end: 20050101
  3. THALOMID [Suspect]
     Route: 048
     Dates: start: 20051001, end: 20060101
  4. THALOMID [Suspect]
     Route: 048
     Dates: start: 20060101, end: 20060401
  5. THALOMID [Suspect]
     Route: 048
     Dates: start: 20060401
  6. THALOMID [Suspect]
     Route: 048
     Dates: start: 20050101, end: 20050101
  7. PANTOPRAZOLE SODIUM [Concomitant]
     Route: 065
  8. AREDIA [Concomitant]
     Route: 065
  9. EPREX [Concomitant]
     Route: 065

REACTIONS (4)
  - CONSTIPATION [None]
  - DEEP VEIN THROMBOSIS [None]
  - DRUG EFFECT DECREASED [None]
  - NEUROPATHY [None]
